FAERS Safety Report 20429573 (Version 1)
Quarter: 2022Q1

REPORT INFORMATION
  Report Type: Report from Study
  Country: FR (occurrence: FR)
  Receive Date: 20220204
  Receipt Date: 20220204
  Transmission Date: 20220423
  Serious: Yes (Other)
  Sender: FDA-Public Use
  Company Number: FR-SERVIER-S19006238

PATIENT

DRUGS (4)
  1. ONCASPAR [Suspect]
     Active Substance: PEGASPARGASE
     Indication: Acute lymphocytic leukaemia
     Dosage: 712.5 IU ON D12 AND D26 OF EACH CYCLE
     Route: 042
     Dates: start: 20190316, end: 20190330
  2. DEXAMETHASONE [Concomitant]
     Active Substance: DEXAMETHASONE
     Indication: Acute lymphocytic leukaemia
     Dosage: 3.5 MG ON D8-28 OF EACH CYCLE
     Route: 042
     Dates: start: 20190312, end: 20190401
  3. VINCRISTINE [Concomitant]
     Active Substance: VINCRISTINE
     Indication: Acute lymphocytic leukaemia
     Dosage: 0.9 MG ON D8, 15, 22 OF EACH CYCLE
     Route: 042
     Dates: start: 20190312, end: 20190326
  4. METHOTREXATE [Concomitant]
     Active Substance: METHOTREXATE
     Indication: Acute lymphocytic leukaemia
     Dosage: 8 MG ON D9, 13, 18 OF EACH CYCLE
     Route: 037
     Dates: start: 20190313, end: 20190322

REACTIONS (2)
  - Hypofibrinogenaemia [Recovered/Resolved]
  - Hepatitis cholestatic [Recovered/Resolved]

NARRATIVE: CASE EVENT DATE: 20190405
